FAERS Safety Report 6800780-1 (Version None)
Quarter: 2010Q2

REPORT INFORMATION
  Report Type: 
  Country: None (occurrence: None)
  Receive Date: 20100629
  Receipt Date: 20100623
  Transmission Date: 20101027
  Serious: Yes (Hospitalization)
  Sender: FDA-Public Use
  Company Number: US-ASTRAZENECA-2010SE29420

PATIENT
  Age: 57 Year
  Sex: Male
  Weight: 87.1 kg

DRUGS (3)
  1. SYMBICORT [Suspect]
     Indication: CHRONIC OBSTRUCTIVE PULMONARY DISEASE
     Dosage: 160 MCG BID
     Route: 055
     Dates: start: 20090801
  2. VENTOLIN [Concomitant]
  3. SPIRIVA [Concomitant]

REACTIONS (1)
  - BRONCHOPNEUMONIA [None]
